FAERS Safety Report 25756795 (Version 1)
Quarter: 2025Q3

REPORT INFORMATION
  Report Type: Spontaneous
  Country: CN (occurrence: CN)
  Receive Date: 20250903
  Receipt Date: 20250903
  Transmission Date: 20251021
  Serious: Yes (Other)
  Sender: BEIGENE
  Company Number: AU-EMD Serono-9392084

PATIENT
  Age: 80 Year

DRUGS (11)
  1. BRUKINSA [Suspect]
     Active Substance: ZANUBRUTINIB
     Indication: Product used for unknown indication
  2. CYCLOPHOSPHAMIDE [Suspect]
     Active Substance: CYCLOPHOSPHAMIDE
  3. ATEZOLIZUMAB [Suspect]
     Active Substance: ATEZOLIZUMAB
  4. DURVALUMAB [Suspect]
     Active Substance: DURVALUMAB
  5. RITUXIMAB [Suspect]
     Active Substance: RITUXIMAB
  6. DOXORUBICIN HYDROCHLORIDE [Suspect]
     Active Substance: DOXORUBICIN HYDROCHLORIDE
  7. VINCRISTINE SULFATE [Suspect]
     Active Substance: VINCRISTINE SULFATE
  8. PREDNISOLONE [Suspect]
     Active Substance: PREDNISOLONE
  9. BENDAMUSTINE HYDROCHLORIDE [Suspect]
     Active Substance: BENDAMUSTINE HYDROCHLORIDE
  10. POLATUZUMAB VEDOTIN [Suspect]
     Active Substance: POLATUZUMAB VEDOTIN
  11. AVELUMAB [Suspect]
     Active Substance: AVELUMAB

REACTIONS (3)
  - Ankylosing spondylitis [Unknown]
  - Condition aggravated [Unknown]
  - Lymphoma transformation [Unknown]
